FAERS Safety Report 6585043-4 (Version None)
Quarter: 2010Q1

REPORT INFORMATION
  Report Type: 
  Country: None (occurrence: None)
  Receive Date: 20100204
  Receipt Date: 20100120
  Transmission Date: 20100710
  Serious: Yes (Hospitalization)
  Sender: FDA-Public Use
  Company Number: 2010000270

PATIENT
  Sex: Male
  Weight: 78.0187 kg

DRUGS (2)
  1. ERLOTINIB            (ERLOTINIB) [Suspect]
     Indication: HEPATIC NEOPLASM MALIGNANT RECURRENT
     Dosage: 150 MG, QD, ORAL
     Route: 048
     Dates: start: 20091029, end: 20100103
  2. TAXOTERE [Suspect]
     Indication: HEPATIC NEOPLASM MALIGNANT RECURRENT
     Dosage: 30 MG/M2, QW, INTRAVENOUS
     Route: 011
     Dates: start: 20091029, end: 20091231

REACTIONS (9)
  - ABDOMINAL PAIN [None]
  - ASPARTATE AMINOTRANSFERASE INCREASED [None]
  - CONSTIPATION [None]
  - HERPES OESOPHAGITIS [None]
  - INTERNATIONAL NORMALISED RATIO INCREASED [None]
  - NAUSEA [None]
  - PLATELET COUNT DECREASED [None]
  - PROTHROMBIN TIME PROLONGED [None]
  - WHITE BLOOD CELL COUNT DECREASED [None]
